FAERS Safety Report 18850486 (Version 20)
Quarter: 2022Q1

REPORT INFORMATION
  Report Type: Report from Study
  Country: BR (occurrence: BR)
  Receive Date: 20210204
  Receipt Date: 20220201
  Transmission Date: 20220424
  Serious: Yes (Life-Threatening, Other)
  Sender: FDA-Public Use
  Company Number: NVSC2020BR191626

PATIENT
  Sex: Female

DRUGS (18)
  1. KISQALI [Suspect]
     Active Substance: RIBOCICLIB
     Indication: Breast cancer metastatic
     Dosage: 600 MG (3 DF) (EVERY DAY FOR 14 DAYS, EVERY 21 DAYS)
     Route: 048
     Dates: start: 20200514
  2. KISQALI [Suspect]
     Active Substance: RIBOCICLIB
     Dosage: UNK (USES FOR 21 DAYS AND 7 DAYS OF BREAK)
     Route: 065
     Dates: start: 20200514
  3. KISQALI [Suspect]
     Active Substance: RIBOCICLIB
     Dosage: UNK (USES FOR 21 DAYS AND 7 DAYS OF BREAK)
     Route: 065
     Dates: start: 20200514
  4. KISQALI [Suspect]
     Active Substance: RIBOCICLIB
     Dosage: 3 DF (FOR 21 DAYS AND 7 DAYS OF BREAK)
     Route: 065
     Dates: start: 20200514
  5. KISQALI [Suspect]
     Active Substance: RIBOCICLIB
     Dosage: UNK
     Route: 048
     Dates: start: 202005
  6. KISQALI [Suspect]
     Active Substance: RIBOCICLIB
     Dosage: EVERY 21 DAYS, PAUSE OF 7 DAYS
     Route: 048
     Dates: start: 20200514
  7. KISQALI [Suspect]
     Active Substance: RIBOCICLIB
     Dosage: UNK
     Route: 065
     Dates: start: 20200514
  8. KISQALI [Suspect]
     Active Substance: RIBOCICLIB
     Dosage: UNK (21 DAY CYCLE)
     Route: 048
  9. KISQALI [Suspect]
     Active Substance: RIBOCICLIB
     Dosage: UNK
     Route: 048
     Dates: start: 20200516
  10. KISQALI [Suspect]
     Active Substance: RIBOCICLIB
     Dosage: UNK
     Route: 065
     Dates: start: 20210514
  11. KISQALI [Suspect]
     Active Substance: RIBOCICLIB
     Dosage: 3 DF
     Route: 065
     Dates: start: 20200516
  12. KISQALI [Suspect]
     Active Substance: RIBOCICLIB
     Dosage: 3 DF
     Route: 065
     Dates: start: 20200516
  13. KISQALI [Suspect]
     Active Substance: RIBOCICLIB
     Dosage: UNK
     Route: 065
  14. KISQALI [Suspect]
     Active Substance: RIBOCICLIB
     Dosage: UNK
     Route: 065
  15. LETROZOLE [Suspect]
     Active Substance: LETROZOLE
     Indication: Neoplasm malignant
     Dosage: 1 DF, QD
     Route: 048
  16. LETROZOLE [Suspect]
     Active Substance: LETROZOLE
     Dosage: UNK
     Route: 065
     Dates: start: 202004
  17. CITALOPRAM [Suspect]
     Active Substance: CITALOPRAM HYDROBROMIDE
     Indication: Product used for unknown indication
     Dosage: UNK
     Route: 065
  18. XGEVA [Concomitant]
     Active Substance: DENOSUMAB
     Indication: Metastases to bone
     Dosage: UNK
     Route: 065

REACTIONS (83)
  - Feeling abnormal [Recovered/Resolved]
  - Pain [Recovered/Resolved]
  - Dysentery [Unknown]
  - Neoplasm malignant [Unknown]
  - Metastasis [Unknown]
  - Metastases to bone [Unknown]
  - Metastases to spine [Unknown]
  - Precancerous condition [Not Recovered/Not Resolved]
  - Chest injury [Unknown]
  - Visual impairment [Not Recovered/Not Resolved]
  - Insomnia [Recovering/Resolving]
  - Sluggishness [Not Recovered/Not Resolved]
  - Hypersensitivity [Unknown]
  - Ageusia [Unknown]
  - Impaired healing [Unknown]
  - Abnormal behaviour [Unknown]
  - Bone loss [Unknown]
  - Swelling [Unknown]
  - Headache [Recovered/Resolved]
  - Dizziness [Not Recovered/Not Resolved]
  - Dry skin [Recovering/Resolving]
  - Pruritus [Recovering/Resolving]
  - Diarrhoea [Unknown]
  - Peripheral swelling [Recovered/Resolved]
  - Alopecia [Not Recovered/Not Resolved]
  - Swelling face [Not Recovered/Not Resolved]
  - Lymphadenopathy [Unknown]
  - Urticaria [Recovering/Resolving]
  - Scratch [Unknown]
  - Onychoclasis [Unknown]
  - Burning sensation [Unknown]
  - Stress [Unknown]
  - Anxiety [Unknown]
  - Pelvic discomfort [Unknown]
  - Fear [Unknown]
  - Hypotension [Unknown]
  - Infection [Unknown]
  - Hypokinesia [Unknown]
  - Arthralgia [Unknown]
  - Depressed mood [Unknown]
  - Unevaluable event [Unknown]
  - Fall [Unknown]
  - Dysstasia [Unknown]
  - Iliac artery disease [Not Recovered/Not Resolved]
  - Spinal pain [Unknown]
  - Skin lesion [Not Recovered/Not Resolved]
  - Drug resistance [Unknown]
  - Off label use [Unknown]
  - Bone disorder [Unknown]
  - Posture abnormal [Recovering/Resolving]
  - Neck injury [Unknown]
  - Skeletal injury [Unknown]
  - Memory impairment [Unknown]
  - Distractibility [Not Recovered/Not Resolved]
  - Pain in extremity [Recovered/Resolved]
  - Myalgia [Recovered/Resolved]
  - Anaemia [Not Recovered/Not Resolved]
  - Asthenia [Recovered/Resolved]
  - Decreased appetite [Not Recovered/Not Resolved]
  - Nausea [Recovering/Resolving]
  - Oedema peripheral [Unknown]
  - Peripheral swelling [Recovering/Resolving]
  - Mental disorder [Unknown]
  - Injury [Unknown]
  - Back pain [Unknown]
  - Dyspnoea exertional [Unknown]
  - Pelvic pain [Not Recovered/Not Resolved]
  - Yellow skin [Unknown]
  - Bone swelling [Not Recovered/Not Resolved]
  - Limb injury [Unknown]
  - Peripheral nerve lesion [Unknown]
  - Malaise [Unknown]
  - Gait disturbance [Unknown]
  - Decreased immune responsiveness [Not Recovered/Not Resolved]
  - Muscle atrophy [Recovering/Resolving]
  - Joint dislocation [Unknown]
  - Fatigue [Not Recovered/Not Resolved]
  - Headache [Recovering/Resolving]
  - Exercise tolerance decreased [Unknown]
  - Bone pain [Unknown]
  - Musculoskeletal chest pain [Recovered/Resolved]
  - Vomiting [Unknown]
  - Pain [Unknown]

NARRATIVE: CASE EVENT DATE: 20190101
